FAERS Safety Report 5094842-X (Version None)
Quarter: 2006Q3

REPORT INFORMATION
  Report Type: 
  Country: None (occurrence: None)
  Receive Date: 20060831
  Receipt Date: 20060831
  Transmission Date: 20061208
  Serious: Yes (Life-Threatening, Hospitalization)
  Sender: FDA-Public Use
  Company Number: None

PATIENT
  Age: 78 Year
  Sex: Female

DRUGS (6)
  1. BEVACIZUMAB GENENTECH [Suspect]
     Indication: OVARIAN CANCER
     Dosage: 5 MG/KG EVERY 3 WEEKS IV
     Route: 042
     Dates: start: 20051121, end: 20051212
  2. VALSARTAN [Concomitant]
  3. METOPROLOL TARTRATE [Concomitant]
  4. WARFARIN SODIUM [Concomitant]
  5. GABAPENTIN [Concomitant]
  6. PROMETHAZINE [Concomitant]

REACTIONS (1)
  - HYPERTENSIVE CRISIS [None]
